FAERS Safety Report 8778120 (Version 1)
Quarter: 2012Q4

REPORT INFORMATION
  Report Type: 
  Country: US (occurrence: US)
  Receive Date: 20120912
  Receipt Date: 20120912
  Transmission Date: 20130627
  Serious: No
  Sender: FDA-Public Use
  Company Number: US-ASTRAZENECA-2012SE65224

PATIENT
  Age: 64 Year
  Sex: Female
  Weight: 71.7 kg

DRUGS (7)
  1. SEROQUEL [Suspect]
     Indication: DEPRESSION
     Route: 048
  2. ATIVAN [Concomitant]
  3. LISINOPRIL [Concomitant]
     Indication: BLOOD PRESSURE
  4. CYMBALTA [Concomitant]
     Indication: DEPRESSION
  5. ZOCOR [Concomitant]
     Indication: BLOOD CHOLESTEROL
  6. ARICEPT [Concomitant]
     Indication: AMNESIA
  7. LORTAB [Concomitant]

REACTIONS (2)
  - Dementia [Unknown]
  - Circumstance or information capable of leading to medication error [Unknown]
